FAERS Safety Report 9947815 (Version 1)
Quarter: 2014Q1

REPORT INFORMATION
  Report Type: Report from Study
  Country: US (occurrence: US)
  Receive Date: 20140303
  Receipt Date: 20140303
  Transmission Date: 20141002
  Serious: No
  Sender: FDA-Public Use
  Company Number: US-ABBVIE-13P-163-1056605-00

PATIENT
  Age: 66 Year
  Sex: Male

DRUGS (13)
  1. HUMIRA [Suspect]
     Indication: CROHN^S DISEASE
     Dates: start: 20121221
  2. FOSAMAX [Concomitant]
     Indication: BONE DENSITY ABNORMAL
  3. ALLOPURINOL [Concomitant]
     Indication: GOUT
  4. ACIDOPHILUS [Concomitant]
     Indication: PRODUCT USED FOR UNKNOWN INDICATION
     Dosage: DAILY
  5. ARANSEP [Concomitant]
     Indication: RED BLOOD CELL COUNT ABNORMAL
     Dosage: OPPOSITE HUMIRA SCHEDULE
  6. VIT D [Concomitant]
     Indication: PRODUCT USED FOR UNKNOWN INDICATION
  7. B12 [Concomitant]
     Indication: PRODUCT USED FOR UNKNOWN INDICATION
     Route: 050
  8. CALCIUM+VIT D [Concomitant]
     Indication: PRODUCT USED FOR UNKNOWN INDICATION
     Dosage: 500/200U EVERY DAY
  9. MULTIVITAMIN [Concomitant]
     Indication: DIARRHOEA
     Dosage: EVERY DAY
  10. LOPERAMIDE [Concomitant]
     Indication: DIARRHOEA
     Dosage: 6-8 TABS DAILY
  11. VENOFER IV IRON [Concomitant]
     Indication: ANAEMIA
     Dosage: AS NEEDED BY HEMATOLOGISTS RECOMMENDATION
  12. FOLIC ACID [Concomitant]
     Indication: PRODUCT USED FOR UNKNOWN INDICATION
  13. IRON [Concomitant]
     Indication: ANAEMIA

REACTIONS (4)
  - Weight decreased [Not Recovered/Not Resolved]
  - Drug ineffective [Not Recovered/Not Resolved]
  - Diarrhoea [Not Recovered/Not Resolved]
  - Vomiting [Not Recovered/Not Resolved]
